FAERS Safety Report 4286540-7 (Version None)
Quarter: 2004Q1

REPORT INFORMATION
  Report Type: 
  Country: None (occurrence: None)
  Receive Date: 20040204
  Receipt Date: 20040128
  Transmission Date: 20041129
  Serious: Yes (Other)
  Sender: FDA-Public Use
  Company Number: GB-JNJFOC-20040105526

PATIENT
  Age: 69 Year
  Sex: Female

DRUGS (2)
  1. DOXORUBICIN HYDROCHLORIDE [Suspect]
     Indication: MALIGNANT PALATE NEOPLASM
     Dosage: 40 MG/M2 EVERY 3 WEEKS X2 DOSES
  2. RADIATION THERAPY (OTHER DIAGNOSTIC AGENTS) [Suspect]
     Indication: MALIGNANT PALATE NEOPLASM

REACTIONS (1)
  - NON-SMALL CELL LUNG CANCER [None]
